FAERS Safety Report 18385157 (Version 1)
Quarter: 2020Q4

REPORT INFORMATION
  Report Type: Report from Study
  Country: US (occurrence: US)
  Receive Date: 20201014
  Receipt Date: 20201014
  Transmission Date: 20210114
  Serious: Yes (Hospitalization)
  Sender: FDA-Public Use
  Company Number: US-ROCHE-2690972

PATIENT
  Age: 75 Year
  Sex: Female
  Weight: 83.95 kg

DRUGS (2)
  1. GUADECITABINE [Suspect]
     Active Substance: GUADECITABINE
     Indication: MYELODYSPLASTIC SYNDROME
     Route: 065
  2. ATEZOLIZUMAB. [Suspect]
     Active Substance: ATEZOLIZUMAB
     Indication: MYELODYSPLASTIC SYNDROME
     Route: 042

REACTIONS (2)
  - Pancytopenia [Unknown]
  - Cellulitis [Unknown]

NARRATIVE: CASE EVENT DATE: 20200730
